FAERS Safety Report 5091321-0 (Version None)
Quarter: 2006Q3

REPORT INFORMATION
  Report Type: 
  Country: None (occurrence: None)
  Receive Date: 20060824
  Receipt Date: 20060627
  Transmission Date: 20061208
  Serious: Yes (Other)
  Sender: FDA-Public Use
  Company Number: 20060141

PATIENT
  Age: 65 Year
  Sex: Female
  Weight: 72.5755 kg

DRUGS (4)
  1. METHYLENE BLUE INJECTION, USP (0373-70) [Suspect]
     Indication: CYSTOSCOPY
     Dosage: 10 ML; INTRAVENOUS
     Route: 042
     Dates: start: 20060627, end: 20060627
  2. FENTANYL [Concomitant]
  3. VERSED [Concomitant]
  4. PROPOFOL [Concomitant]

REACTIONS (6)
  - HYPOAESTHESIA [None]
  - INFUSION SITE EXTRAVASATION [None]
  - OEDEMA PERIPHERAL [None]
  - PAIN IN EXTREMITY [None]
  - PROCEDURAL COMPLICATION [None]
  - SKIN DISCOLOURATION [None]
